FAERS Safety Report 9869973 (Version 1)
Quarter: 2014Q1

REPORT INFORMATION
  Report Type: Spontaneous
  Country: US (occurrence: US)
  Receive Date: 20140205
  Receipt Date: 20140205
  Transmission Date: 20141002
  Serious: No
  Sender: FDA-Public Use
  Company Number: US-GLAXOSMITHKLINE-A1009070A

PATIENT
  Sex: Male

DRUGS (1)
  1. VALTREX [Suspect]
     Indication: ORAL HERPES
     Route: 065

REACTIONS (3)
  - Ill-defined disorder [Unknown]
  - Chapped lips [Unknown]
  - Lip haemorrhage [Unknown]
